FAERS Safety Report 15170349 (Version 2)
Quarter: 2018Q3

REPORT INFORMATION
  Report Type: Spontaneous
  Country: US (occurrence: US)
  Receive Date: 20180720
  Receipt Date: 20180910
  Transmission Date: 20181010
  Serious: No
  Sender: FDA-Public Use
  Company Number: US-ASTRAZENECA-2018SE82529

PATIENT
  Age: 29312 Day
  Sex: Female
  Weight: 69.4 kg

DRUGS (1)
  1. CALQUENCE [Suspect]
     Active Substance: ACALABRUTINIB
     Indication: MANTLE CELL LYMPHOMA
     Route: 048
     Dates: start: 201806

REACTIONS (2)
  - Drug dose omission [Not Recovered/Not Resolved]
  - Mandibular mass [Unknown]

NARRATIVE: CASE EVENT DATE: 20180620
